FAERS Safety Report 6072777-3 (Version None)
Quarter: 2009Q1

REPORT INFORMATION
  Report Type: 
  Country: None (occurrence: None)
  Receive Date: 20090210
  Receipt Date: 20090203
  Transmission Date: 20090719
  Serious: Yes (Hospitalization)
  Sender: FDA-Public Use
  Company Number: US-GILEAD-2008-0018114

PATIENT
  Sex: Male
  Weight: 74.91 kg

DRUGS (12)
  1. LETAIRIS [Suspect]
     Indication: PULMONARY ARTERIAL HYPERTENSION
     Route: 048
     Dates: start: 20080829, end: 20080830
  2. LETAIRIS [Suspect]
     Dates: start: 20081028, end: 20081204
  3. VENTAVIS [Concomitant]
     Route: 055
  4. REVATIO [Concomitant]
     Route: 048
  5. SPIRIVA [Concomitant]
  6. ADVAIR DISKUS 100/50 [Concomitant]
     Dosage: 500/50
  7. DUONEB [Concomitant]
     Dosage: 2.5-0.5/3ML
  8. OXYGEN [Concomitant]
     Dosage: AS DIRECTED
  9. LIPITOR [Concomitant]
     Route: 048
  10. ASPIRIN [Concomitant]
     Route: 048
  11. CALCIUM [Concomitant]
     Route: 048
  12. MULTI-VITAMIN [Concomitant]
     Dosage: AS DIRECTED
     Route: 048

REACTIONS (1)
  - PNEUMONIA [None]
